FAERS Safety Report 4795328-X (Version None)
Quarter: 2005Q4

REPORT INFORMATION
  Report Type: 
  Country: None (occurrence: None)
  Receive Date: 20051012
  Receipt Date: 20051006
  Transmission Date: 20060501
  Serious: Yes (Other)
  Sender: FDA-Public Use
  Company Number: GB-GLAXOSMITHKLINE-B0396656A

PATIENT
  Age: 66 Year
  Sex: Male
  Weight: 76 kg

DRUGS (9)
  1. ROSIGLITAZONE MALEATE [Suspect]
     Indication: DIABETES MELLITUS
     Route: 048
     Dates: start: 20050822, end: 20050926
  2. TOLBUTAMIDE [Concomitant]
     Dosage: 2UNIT TWICE PER DAY
     Route: 065
     Dates: start: 19940920
  3. ADALAT [Concomitant]
     Route: 065
     Dates: start: 20000622
  4. SIMVASTATIN [Concomitant]
     Dosage: 1UNIT AT NIGHT
     Route: 065
     Dates: start: 20030429
  5. ENALAPRIL MALEATE [Concomitant]
     Dosage: 1UNIT IN THE MORNING
     Route: 065
     Dates: start: 20031022
  6. CLOTRIMAZOLE [Concomitant]
     Route: 065
     Dates: start: 20031231
  7. FUROSEMIDE [Concomitant]
     Dosage: 1UNIT IN THE MORNING
     Route: 065
     Dates: start: 20000622
  8. RABEPRAZOLE SODIUM [Concomitant]
     Dosage: 1UNIT PER DAY
     Route: 065
     Dates: start: 20041213
  9. CLOPIDOGREL [Concomitant]
     Dosage: 1UNIT IN THE MORNING
     Route: 065
     Dates: start: 20050407

REACTIONS (2)
  - ANGER [None]
  - MOOD SWINGS [None]
